FAERS Safety Report 8813358 (Version 1)
Quarter: 2012Q4

REPORT INFORMATION
  Report Type: 
  Country: US (occurrence: US)
  Receive Date: 20120927
  Receipt Date: 20120927
  Transmission Date: 20130627
  Serious: No
  Sender: FDA-Public Use
  Company Number: US-AMGEN-USASP2012036319

PATIENT
  Age: 83 Year
  Sex: Female
  Weight: 77.55 kg

DRUGS (11)
  1. PROLIA [Suspect]
     Indication: OSTEOPOROSIS POSTMENOPAUSAL
     Dosage: 60 mg, q6mo
     Route: 058
     Dates: start: 20120514
  2. PROLIA [Suspect]
     Dates: start: 20120414
  3. SINGULAIR [Concomitant]
     Dosage: 1 mg, qd
  4. SINGULAIR [Concomitant]
  5. SIMVASTATIN [Concomitant]
     Dosage: 1 mg, qd
  6. SIMVASTATIN [Concomitant]
  7. LISINOPRIL [Concomitant]
     Dosage: 1 mg, qd
  8. LISINOPRIL [Concomitant]
  9. ADVAIR HFA [Concomitant]
     Dosage: UNK
  10. ACETAMINOPHEN [Concomitant]
     Dosage: UNK
  11. TRAMADOL [Concomitant]
     Dosage: UNK

REACTIONS (6)
  - Arthralgia [Not Recovered/Not Resolved]
  - Feeling hot [Not Recovered/Not Resolved]
  - Gait disturbance [Not Recovered/Not Resolved]
  - Mobility decreased [Not Recovered/Not Resolved]
  - Neck pain [Not Recovered/Not Resolved]
  - Pain in extremity [Not Recovered/Not Resolved]
